FAERS Safety Report 25670699 (Version 3)
Quarter: 2025Q3

REPORT INFORMATION
  Report Type: Report from Study
  Country: US (occurrence: US)
  Receive Date: 20250812
  Receipt Date: 20250929
  Transmission Date: 20251021
  Serious: Yes (Hospitalization, Other)
  Sender: BIOCODEX
  Company Number: US-BIOCODEX2-2025000399

PATIENT
  Age: 2 Year
  Sex: Female
  Weight: 10 kg

DRUGS (10)
  1. DIACOMIT [Suspect]
     Active Substance: STIRIPENTOL
     Indication: Partial seizures
     Dosage: 125MG VIA NG-TUBE THREE TIMES DAILY
     Route: 050
  2. DIACOMIT [Suspect]
     Active Substance: STIRIPENTOL
     Indication: Partial seizures
     Dosage: 375MG THREE TIMES DAILY. MAY HAVE 500MG DAILY AS NEEDED FOR INCREASED SEIZURES.
     Route: 050
     Dates: start: 20250321
  3. ONFI [Concomitant]
     Active Substance: CLOBAZAM
     Indication: Product used for unknown indication
     Route: 065
  4. CLONAZEPAM [Concomitant]
     Active Substance: CLONAZEPAM
     Indication: Product used for unknown indication
     Route: 065
  5. DIASTAT [Concomitant]
     Active Substance: DIAZEPAM
     Indication: Product used for unknown indication
     Route: 065
  6. EPIDIOLEX [Concomitant]
     Active Substance: CANNABIDIOL
     Indication: Product used for unknown indication
     Route: 065
  7. MIRALAX [Concomitant]
     Active Substance: POLYETHYLENE GLYCOL 3350
     Indication: Product used for unknown indication
     Route: 065
  8. Vitamin D3 / Vitamind D2 [Concomitant]
     Indication: Product used for unknown indication
     Route: 065
  9. VIGARDONE [Concomitant]
     Indication: Product used for unknown indication
     Route: 065
  10. PROPRANOLOL [Concomitant]
     Active Substance: PROPRANOLOL HYDROCHLORIDE
     Indication: Product used for unknown indication
     Route: 065

REACTIONS (6)
  - Seizure [Unknown]
  - Off label use [Unknown]
  - Product preparation issue [Unknown]
  - Off label use [Unknown]
  - Inappropriate schedule of product administration [Unknown]
  - Hospitalisation [Unknown]
